FAERS Safety Report 14921851 (Version 2)
Quarter: 2018Q4

REPORT INFORMATION
  Report Type: Spontaneous
  Country: FR (occurrence: FR)
  Receive Date: 20180522
  Receipt Date: 20181128
  Transmission Date: 20190204
  Serious: Yes (Other)
  Sender: FDA-Public Use
  Company Number: FR-MERCK KGAA-2048205

PATIENT
  Sex: Female

DRUGS (1)
  1. EUTHYROX [Suspect]
     Active Substance: LEVOTHYROXINE SODIUM
     Indication: PRODUCT USED FOR UNKNOWN INDICATION
     Dates: start: 2017

REACTIONS (15)
  - Dizziness [None]
  - Fatigue [None]
  - Headache [None]
  - Gastrointestinal disorder [None]
  - Libido decreased [None]
  - Arthralgia [None]
  - Cognitive disorder [None]
  - Palpitations [None]
  - Major depression [None]
  - Decreased activity [None]
  - Social avoidant behaviour [None]
  - Affect lability [None]
  - Aphasia [None]
  - Crying [None]
  - Mood altered [None]
